FAERS Safety Report 21231792 (Version 12)
Quarter: 2024Q1

REPORT INFORMATION
  Report Type: Spontaneous
  Country: CA (occurrence: CA)
  Receive Date: 20220819
  Receipt Date: 20240314
  Transmission Date: 20240410
  Serious: Yes (Other)
  Sender: FDA-Public Use
  Company Number: CA-CELLTRION INC.-2022CA013368

PATIENT

DRUGS (17)
  1. INFLECTRA [Suspect]
     Active Substance: INFLIXIMAB-DYYB
     Indication: Colitis ulcerative
     Dosage: 10 MG/KG (1000 MG), Q 0, 2, 6, THEN EVERY 8 WEEKS WEEK 0 DOSE AT HOSPITAL
     Route: 042
     Dates: start: 20220804
  2. INFLECTRA [Suspect]
     Active Substance: INFLIXIMAB-DYYB
     Dosage: 1000 MG, Q 0, 2, 6, THEN EVERY 8 WEEKS (SUPPOSED TO RECEIVE 10 MG/KG)
     Route: 042
     Dates: start: 20220817
  3. INFLECTRA [Suspect]
     Active Substance: INFLIXIMAB-DYYB
     Dosage: 10 MG/KG Q 2, 6, THEN EVERY 8 WEEKS
     Route: 042
     Dates: start: 20220912
  4. INFLECTRA [Suspect]
     Active Substance: INFLIXIMAB-DYYB
     Dosage: 10 MG/KG Q 2, 6, THEN EVERY 8 WEEKS
     Route: 042
     Dates: start: 20221108
  5. INFLECTRA [Suspect]
     Active Substance: INFLIXIMAB-DYYB
     Dosage: 10 MG/KG Q 2, 6, THEN EVERY 8 WEEKS
     Route: 042
     Dates: start: 20230109
  6. INFLECTRA [Suspect]
     Active Substance: INFLIXIMAB-DYYB
     Dosage: 10MG/KG (1100MG) Q 2, 6, THEN EVERY 8 WEEKS
     Route: 042
     Dates: start: 20230308
  7. INFLECTRA [Suspect]
     Active Substance: INFLIXIMAB-DYYB
     Dosage: 1100 MG EVERY 8 WEEKS
     Route: 042
     Dates: start: 20230501
  8. INFLECTRA [Suspect]
     Active Substance: INFLIXIMAB-DYYB
     Dosage: 10 MG/KG 2, 6, THEN EVERY 8 WEEKS
     Route: 042
     Dates: start: 20231018
  9. INFLECTRA [Suspect]
     Active Substance: INFLIXIMAB-DYYB
     Dosage: 10 MG/KG (1120MG) 2, 6, THEN EVERY 8 WEEKS
     Route: 042
     Dates: start: 20231213
  10. INFLECTRA [Suspect]
     Active Substance: INFLIXIMAB-DYYB
     Dosage: 10 MG/KG (1120MG) 2, 6, THEN EVERY 8 WEEKS
     Route: 042
     Dates: start: 20231213
  11. INFLECTRA [Suspect]
     Active Substance: INFLIXIMAB-DYYB
     Dosage: 10 MG/KG, Q 2, 6, THEN EVERY 8 WEEKSWEEK 0 AT HOSPITAL (1140 MG, AFTER 7 WEEKS AND 6 DAYS)
     Route: 042
     Dates: start: 20240206
  12. AMLODIPINE [Concomitant]
     Active Substance: AMLODIPINE BESYLATE
     Dosage: 10 MG, DAILY
     Route: 065
  13. AMLODIPINE [Concomitant]
     Active Substance: AMLODIPINE BESYLATE
     Dosage: 20 MG
  14. PREDNISONE [Concomitant]
     Active Substance: PREDNISONE
     Dosage: 40 MG, DAILY
     Route: 065
  15. PREDNISONE [Concomitant]
     Active Substance: PREDNISONE
     Dosage: 40 MG
     Dates: start: 20220803
  16. VALSARTAN [Concomitant]
     Active Substance: VALSARTAN
     Dosage: 40 MG, DAILY
     Route: 065
  17. VALSARTAN [Concomitant]
     Active Substance: VALSARTAN
     Dosage: 40 MG

REACTIONS (14)
  - Haematochezia [Not Recovered/Not Resolved]
  - Condition aggravated [Recovering/Resolving]
  - Frequent bowel movements [Recovering/Resolving]
  - Blood potassium decreased [Not Recovered/Not Resolved]
  - Anion gap decreased [Not Recovered/Not Resolved]
  - Blood calcium decreased [Not Recovered/Not Resolved]
  - Haemoglobin decreased [Not Recovered/Not Resolved]
  - Red blood cell count decreased [Not Recovered/Not Resolved]
  - Sensation of foreign body [Unknown]
  - Dysphagia [Unknown]
  - Dyspepsia [Unknown]
  - Therapeutic response shortened [Unknown]
  - Off label use [Unknown]
  - Off label use [Unknown]

NARRATIVE: CASE EVENT DATE: 20220804
